FAERS Safety Report 16956580 (Version 1)
Quarter: 2019Q4

REPORT INFORMATION
  Report Type: Report from Study
  Country: BE (occurrence: BE)
  Receive Date: 20191024
  Receipt Date: 20191024
  Transmission Date: 20200122
  Serious: Yes (Other)
  Sender: FDA-Public Use
  Company Number: BE-ROCHE-2261476

PATIENT

DRUGS (1)
  1. OCRELIZUMAB. [Suspect]
     Active Substance: OCRELIZUMAB
     Indication: PRIMARY PROGRESSIVE MULTIPLE SCLEROSIS
     Route: 042

REACTIONS (7)
  - Neurological decompensation [Unknown]
  - Muscle spasms [Unknown]
  - Skin bacterial infection [Unknown]
  - Urinary retention [Unknown]
  - Fatigue [Unknown]
  - Renal pain [Unknown]
  - Back pain [Unknown]
